FAERS Safety Report 7366301-2 (Version None)
Quarter: 2011Q1

REPORT INFORMATION
  Report Type: 
  Country: None (occurrence: None)
  Receive Date: 20110225
  Receipt Date: 20110113
  Transmission Date: 20110831
  Serious: Yes (Other)
  Sender: FDA-Public Use
  Company Number: 318652

PATIENT
  Age: 57 Year
  Sex: Female
  Weight: 76.2 kg

DRUGS (7)
  1. GEMFIBROZIL [Concomitant]
  2. GLIMEPIRIDE [Concomitant]
  3. ZOCOR [Concomitant]
  4. METFORMIN HCL [Concomitant]
  5. JANUVIA [Concomitant]
  6. METFORMIN HCL [Concomitant]
  7. VICTOZA [Suspect]
     Indication: TYPE 2 DIABETES MELLITUS
     Dosage: 0.6 MG, QD, SUBCUTANEOUS
     Route: 058
     Dates: start: 20101026, end: 20101115

REACTIONS (1)
  - PANCREATITIS ACUTE [None]
